FAERS Safety Report 11678278 (Version 2)
Quarter: 2015Q4

REPORT INFORMATION
  Report Type: Report from Study
  Country: JP (occurrence: JP)
  Receive Date: 20151028
  Receipt Date: 20151109
  Transmission Date: 20160304
  Serious: Yes (Hospitalization)
  Sender: FDA-Public Use
  Company Number: PHJP2015JP018559

PATIENT
  Age: 45 Year
  Sex: Female
  Weight: 59 kg

DRUGS (6)
  1. MIYA-BM [Concomitant]
     Active Substance: CLOSTRIDIUM BUTYRICUM SPORES STRAIN M-55
     Indication: GASTROENTERITIS
     Dosage: 3 DF, UNK
     Route: 048
     Dates: start: 20150308
  2. CITRIC ACID ANHYDROUS [Concomitant]
     Indication: ANAEMIA
     Dosage: 2 DF, UNK
     Route: 048
     Dates: start: 20151001
  3. LDK378 [Suspect]
     Active Substance: CERITINIB
     Dosage: 600 MG, QD (DAILY)
     Route: 048
     Dates: start: 20150414, end: 20150529
  4. LDK378 [Suspect]
     Active Substance: CERITINIB
     Indication: LUNG NEOPLASM MALIGNANT
     Dosage: 750 MG, QD (DAILY)
     Route: 048
     Dates: start: 20150303, end: 20150407
  5. LDK378 [Suspect]
     Active Substance: CERITINIB
     Dosage: 450 MG, QD (DAILY)
     Route: 048
     Dates: start: 20150618, end: 20151021
  6. GLYCYRON [Concomitant]
     Active Substance: AMMONIUM GLYCYRRHIZATE\GLYCINE\METHIONINE
     Indication: HEPATIC FUNCTION ABNORMAL
     Dosage: 3 DF, UNK
     Route: 048
     Dates: start: 20150604, end: 20151027

REACTIONS (2)
  - Hepatic function abnormal [Recovering/Resolving]
  - Neutrophil count decreased [Recovering/Resolving]

NARRATIVE: CASE EVENT DATE: 20150407
